FAERS Safety Report 11928553 (Version 1)
Quarter: 2016Q1

REPORT INFORMATION
  Report Type: Spontaneous
  Country: FR (occurrence: FR)
  Receive Date: 20160119
  Receipt Date: 20160119
  Transmission Date: 20160526
  Serious: Yes (Other)
  Sender: FDA-Public Use
  Company Number: FR-GILEAD-2016-0192516

PATIENT
  Age: 61 Year
  Sex: Male

DRUGS (1)
  1. STRIBILD [Suspect]
     Active Substance: COBICISTAT\ELVITEGRAVIR\EMTRICITABINE\TENOFOVIR DISOPROXIL FUMARATE
     Indication: HIV INFECTION
     Dosage: 1 DF, QD
     Route: 048
     Dates: start: 20150413, end: 20151005

REACTIONS (3)
  - Allodynia [Recovering/Resolving]
  - Axonal neuropathy [Recovering/Resolving]
  - Dysaesthesia [Recovering/Resolving]

NARRATIVE: CASE EVENT DATE: 201507
